FAERS Safety Report 9524143 (Version 1)
Quarter: 2013Q1

REPORT INFORMATION
  Report Type: Spontaneous
  Country: US (occurrence: None)
  Receive Date: 20130305
  Receipt Date: 20130305
  Transmission Date: 20140127
  Serious: Yes (Disabling)
  Sender: FDA-Public Use
  Company Number: 163-21880-12020970

PATIENT
  Age: 75 Year
  Sex: Male

DRUGS (9)
  1. REVLIMID [Suspect]
     Indication: PLASMA CELL MYELOMA
     Route: 048
     Dates: start: 201003
  2. DECADRON(DEXAMETHASONE) [Concomitant]
  3. COREG(CARVEDILOL) [Concomitant]
  4. BUDESONIDE(BUDESONIDE) [Concomitant]
  5. LASIX(FUROSEMIDE) [Concomitant]
  6. LEVOTHYROXINE(LEVOTHROXINE) [Concomitant]
  7. SINGULAIR [Concomitant]
  8. TAMSULOSIN(TAMSULOSIN) [Concomitant]
  9. WARFARIN(WARFARIN) [Concomitant]

REACTIONS (3)
  - Visual impairment [None]
  - Visual acuity reduced [None]
  - Condition aggravated [None]
